FAERS Safety Report 11081462 (Version 7)
Quarter: 2015Q3

REPORT INFORMATION
  Report Type: Spontaneous
  Country: US (occurrence: US)
  Receive Date: 20150501
  Receipt Date: 20150908
  Transmission Date: 20151125
  Serious: Yes (Death, Hospitalization, Other)
  Sender: FDA-Public Use
  Company Number: US-PFIZER INC-2014342096

PATIENT
  Age: 79 Year
  Sex: Female
  Weight: 64 kg

DRUGS (2)
  1. AFINITOR [Suspect]
     Active Substance: EVEROLIMUS
     Indication: BREAST CANCER METASTATIC
     Dosage: 10 MG, 1X/DAY
     Route: 048
     Dates: start: 201501, end: 20150315
  2. AROMASIN [Suspect]
     Active Substance: EXEMESTANE
     Indication: BREAST CANCER METASTATIC
     Dosage: 25 MG, DAILY
     Route: 048
     Dates: start: 20141121, end: 20150529

REACTIONS (10)
  - Disease progression [Fatal]
  - Asthenia [Unknown]
  - Lethargy [Unknown]
  - Confusional state [Unknown]
  - Acute respiratory failure [Unknown]
  - Weight decreased [Unknown]
  - Breast cancer metastatic [Fatal]
  - Atelectasis [Unknown]
  - Pneumonia [Unknown]
  - Abdominal discomfort [Unknown]
